FAERS Safety Report 22827212 (Version 2)
Quarter: 2023Q4

REPORT INFORMATION
  Report Type: Report from Study
  Country: ES (occurrence: ES)
  Receive Date: 20230816
  Receipt Date: 20231004
  Transmission Date: 20240109
  Serious: Yes (Other)
  Sender: FDA-Public Use
  Company Number: ES-SA-SAC20230213000945

PATIENT
  Age: 79 Year
  Sex: Female
  Weight: 65 kg

DRUGS (6)
  1. LINAGLIPTIN [Suspect]
     Active Substance: LINAGLIPTIN
     Indication: Type 2 diabetes mellitus
     Dosage: UNK
     Route: 048
  2. INSULIN HUMAN NOS [Suspect]
     Active Substance: INSULIN HUMAN
     Indication: Type 2 diabetes mellitus
     Dosage: UNK
  3. INSULIN GLARGINE [Suspect]
     Active Substance: INSULIN GLARGINE
     Indication: Type 2 diabetes mellitus
     Dates: start: 20220401
  4. INSULIN GLARGINE [Suspect]
     Active Substance: INSULIN GLARGINE
  5. INSULIN GLARGINE [Suspect]
     Active Substance: INSULIN GLARGINE
  6. ADO [Concomitant]
     Indication: Type 2 diabetes mellitus
     Dosage: UNK

REACTIONS (8)
  - Diabetes mellitus inadequate control [Unknown]
  - Blood glucose increased [Not Recovered/Not Resolved]
  - Hypoglycaemia [Recovered/Resolved]
  - Nasopharyngitis [Unknown]
  - Arthritis [Unknown]
  - Sluggishness [Unknown]
  - Fall [Unknown]
  - Scar [Recovering/Resolving]

NARRATIVE: CASE EVENT DATE: 20230806
